FAERS Safety Report 21810431 (Version 1)
Quarter: 2023Q1

REPORT INFORMATION
  Report Type: Spontaneous
  Country: CA (occurrence: None)
  Receive Date: 20230103
  Receipt Date: 20230103
  Transmission Date: 20230418
  Serious: Yes (Other)
  Sender: FDA-Public Use
  Company Number: CA-Unichem Pharmaceuticals (USA) Inc-UCM202212-001373

PATIENT
  Age: 74 Year
  Sex: Female

DRUGS (1)
  1. METRONIDAZOLE [Suspect]
     Active Substance: METRONIDAZOLE
     Indication: Colitis ulcerative
     Dosage: UNKNOWN

REACTIONS (10)
  - Fall [Unknown]
  - Nervous system disorder [Recovering/Resolving]
  - Neurotoxicity [Recovered/Resolved]
  - Oscillopsia [Unknown]
  - Diplopia [Unknown]
  - Nystagmus [Unknown]
  - Hyporeflexia [Unknown]
  - Paraesthesia [Unknown]
  - Sensory disturbance [Unknown]
  - Product use in unapproved indication [Unknown]
